FAERS Safety Report 7513385-4 (Version None)
Quarter: 2011Q2

REPORT INFORMATION
  Report Type: 
  Country: None (occurrence: None)
  Receive Date: 20110531
  Receipt Date: 20110526
  Transmission Date: 20111010
  Serious: Yes (Life-Threatening, Hospitalization, Other)
  Sender: FDA-Public Use
  Company Number: DE-ABBOTT-11P-062-0717564-00

PATIENT
  Sex: Female

DRUGS (2)
  1. ANALGETIC DRUG [Concomitant]
     Indication: RHEUMATOID ARTHRITIS
  2. HUMIRA [Suspect]
     Indication: RHEUMATOID ARTHRITIS
     Dosage: 40 MG EOW
     Route: 058
     Dates: start: 19960101, end: 20110101

REACTIONS (2)
  - ABSCESS INTESTINAL [None]
  - PRETERNATURAL ANUS [None]
